FAERS Safety Report 14149012 (Version 1)
Quarter: 2017Q4

REPORT INFORMATION
  Report Type: Report from Study
  Country: JP (occurrence: JP)
  Receive Date: 20171101
  Receipt Date: 20171101
  Transmission Date: 20180321
  Serious: Yes (Other)
  Sender: FDA-Public Use
  Company Number: JP-TEVA-820211ROM

PATIENT
  Age: 51 Year
  Sex: Male

DRUGS (3)
  1. IMATINIB [Suspect]
     Active Substance: IMATINIB
     Indication: PULMONARY CAPILLARY HAEMANGIOMATOSIS
     Dosage: INCREASED FROM 200 TO 300 MG/DAY AND THEN AGAIN REDUCED
     Route: 065
  2. IMATINIB [Suspect]
     Active Substance: IMATINIB
     Dosage: REDUCED TO 200MG/DAY
     Route: 065
  3. IMATINIB [Suspect]
     Active Substance: IMATINIB
     Indication: PULMONARY VENO-OCCLUSIVE DISEASE
     Dosage: STARTED AT 200MG/DAY AND AT DAY 542 INCREASED
     Route: 065

REACTIONS (1)
  - Agranulocytosis [Recovered/Resolved]
